FAERS Safety Report 6613461-4 (Version None)
Quarter: 2010Q1

REPORT INFORMATION
  Report Type: 
  Country: None (occurrence: None)
  Receive Date: 20100225
  Receipt Date: 20100217
  Transmission Date: 20100710
  Serious: No
  Sender: FDA-Public Use
  Company Number: 09-001550

PATIENT
  Sex: Female

DRUGS (1)
  1. TACLONEX SCALP [Suspect]
     Dosage: TOPICAL
     Route: 061

REACTIONS (1)
  - VISION BLURRED [None]
